FAERS Safety Report 7632176-7 (Version None)
Quarter: 2011Q3

REPORT INFORMATION
  Report Type: 
  Country: None (occurrence: None)
  Receive Date: 20110725
  Receipt Date: 20110526
  Transmission Date: 20111222
  Serious: Yes (Hospitalization)
  Sender: FDA-Public Use
  Company Number: US-BRISTOL-MYERS SQUIBB COMPANY-15781545

PATIENT
  Age: 51 Year
  Sex: Female
  Weight: 64 kg

DRUGS (3)
  1. CRESTOR [Concomitant]
  2. TYLENOL-500 [Concomitant]
  3. COUMADIN [Suspect]
     Dosage: APPROXIMATELY 16 YEARS AGO ,RESTARTED MAY11

REACTIONS (5)
  - INTERNATIONAL NORMALISED RATIO INCREASED [None]
  - CONTUSION [None]
  - SWELLING [None]
  - PAIN IN EXTREMITY [None]
  - BLOOD URINE PRESENT [None]
